FAERS Safety Report 6358312-0 (Version None)
Quarter: 2009Q3

REPORT INFORMATION
  Report Type: 
  Country: None (occurrence: None)
  Receive Date: 20090916
  Receipt Date: 20090912
  Transmission Date: 20100115
  Serious: Yes (Death, Hospitalization, Other)
  Sender: FDA-Public Use
  Company Number: PHHY2009BR39208

PATIENT
  Sex: Female

DRUGS (1)
  1. DIOVAN HCT [Suspect]
     Indication: HYPERTENSION
     Dosage: 1 DF (160/12.5), QD
     Dates: start: 20060101

REACTIONS (7)
  - ARRHYTHMIA [None]
  - HAEMATOCHEZIA [None]
  - HERNIA [None]
  - HERNIA REPAIR [None]
  - PNEUMONIA [None]
  - SEPTIC SHOCK [None]
  - ULCER [None]
